FAERS Safety Report 20860724 (Version 1)
Quarter: 2022Q2

REPORT INFORMATION
  Report Type: Spontaneous
  Country: US (occurrence: None)
  Receive Date: 20220522
  Receipt Date: 20220522
  Transmission Date: 20220721
  Serious: Yes (Other)
  Sender: FDA-Public Use
  Company Number: None

PATIENT
  Age: 38 Year
  Sex: Female
  Weight: 89.55 kg

DRUGS (1)
  1. PAXLOVID [Suspect]
     Active Substance: NIRMATRELVIR\RITONAVIR
     Indication: COVID-19
     Dates: start: 20220510, end: 20220515

REACTIONS (7)
  - Chest discomfort [None]
  - SARS-CoV-2 test positive [None]
  - Pyrexia [None]
  - Chills [None]
  - Pain [None]
  - Productive cough [None]
  - Ear congestion [None]

NARRATIVE: CASE EVENT DATE: 20220520
